FAERS Safety Report 17574190 (Version 1)
Quarter: 2020Q1

REPORT INFORMATION
  Report Type: Spontaneous
  Country: US (occurrence: US)
  Receive Date: 20200323
  Receipt Date: 20200323
  Transmission Date: 20200409
  Serious: Yes (Hospitalization)
  Sender: FDA-Public Use
  Company Number: US-TEVA-2020-US-1208953

PATIENT
  Age: 14 Year
  Sex: Female

DRUGS (1)
  1. HYDROXYUREA. [Suspect]
     Active Substance: HYDROXYUREA
     Indication: THALASSAEMIA BETA
     Dosage: 10-20 MG/KG/DAY
     Route: 065

REACTIONS (2)
  - Acute myeloid leukaemia [Recovering/Resolving]
  - Tyrosine kinase mutation [Recovering/Resolving]
